FAERS Safety Report 6295814-X (Version None)
Quarter: 2009Q3

REPORT INFORMATION
  Report Type: 
  Country: None (occurrence: None)
  Receive Date: 20090803
  Receipt Date: 20090803
  Transmission Date: 20100115
  Serious: Yes (Other)
  Sender: FDA-Public Use
  Company Number: None

PATIENT
  Age: 50 Year
  Sex: Female
  Weight: 90.7194 kg

DRUGS (1)
  1. LAMICTAL [Suspect]
     Indication: BIPOLAR DISORDER
     Dosage: 200 MG. ONCE PER DAY PO
     Route: 048
     Dates: start: 20070801, end: 20090529

REACTIONS (8)
  - ALTERED STATE OF CONSCIOUSNESS [None]
  - CONTUSION [None]
  - DEMENTIA [None]
  - DIPLOPIA [None]
  - FALL [None]
  - IMPAIRED WORK ABILITY [None]
  - MENTAL IMPAIRMENT [None]
  - METAMORPHOPSIA [None]
